FAERS Safety Report 14718617 (Version 2)
Quarter: 2018Q2

REPORT INFORMATION
  Report Type: Spontaneous
  Country: US (occurrence: US)
  Receive Date: 20180405
  Receipt Date: 20180405
  Transmission Date: 20180711
  Serious: Yes (Hospitalization, Other)
  Sender: FDA-Public Use
  Company Number: US-STRIDES ARCOLAB LIMITED-2018SP002583

PATIENT

DRUGS (3)
  1. VANCOMYCIN [Suspect]
     Active Substance: VANCOMYCIN
     Dosage: DOSE ADJUSTMENTS TO MAINTAIN A TROUGH CONCENTRATION OF 10-20 MCG/ ML.
     Route: 065
  2. VANCOMYCIN [Suspect]
     Active Substance: VANCOMYCIN
     Indication: PNEUMONIA
     Dosage: 15 MG/KG, EVERY 8 HOURS
     Route: 065
  3. PIPERACILLIN AND TAZOBACTAM [Suspect]
     Active Substance: PIPERACILLIN SODIUM\TAZOBACTAM SODIUM
     Indication: PNEUMONIA
     Dosage: 100 MG/KG, EVERY 8 HOURS
     Route: 065

REACTIONS (6)
  - Acute kidney injury [Recovered/Resolved]
  - Renal tubular necrosis [Unknown]
  - Oedema peripheral [Unknown]
  - Tubulointerstitial nephritis [Unknown]
  - Urine output decreased [Unknown]
  - Pyrexia [Unknown]
